FAERS Safety Report 6059190-X (Version None)
Quarter: 2009Q1

REPORT INFORMATION
  Report Type: 
  Country: None (occurrence: None)
  Receive Date: 20090127
  Receipt Date: 20090127
  Transmission Date: 20090719
  Serious: Yes (Other)
  Sender: FDA-Public Use
  Company Number: None

PATIENT
  Age: 51 Year
  Sex: Female
  Weight: 85.7298 kg

DRUGS (1)
  1. LEVAQUIN [Suspect]
     Indication: SINUSITIS
     Dosage: 1 TAB DAILY PO
     Route: 048
     Dates: start: 20090123, end: 20090126

REACTIONS (5)
  - ANOREXIA [None]
  - ARTHRALGIA [None]
  - HEADACHE [None]
  - INFLUENZA LIKE ILLNESS [None]
  - MUSCULOSKELETAL PAIN [None]
